FAERS Safety Report 20691951 (Version 1)
Quarter: 2022Q2

REPORT INFORMATION
  Report Type: Spontaneous
  Country: US (occurrence: US)
  Receive Date: 20220408
  Receipt Date: 20220408
  Transmission Date: 20220721
  Serious: No
  Sender: FDA-Public Use
  Company Number: US-009507513-2203USA010775

PATIENT
  Age: 78 Year
  Sex: Male

DRUGS (3)
  1. INVANZ [Suspect]
     Active Substance: ERTAPENEM SODIUM
     Indication: Diverticulitis
     Dosage: 1 GRAM OVER 6 MINUTE TIME PERIOD
     Route: 042
     Dates: start: 20220324
  2. MOBIC [Suspect]
     Active Substance: MELOXICAM
     Indication: Pleuritic pain
     Dosage: 7.5 MILLIGRAM, ONCE
     Dates: start: 202203
  3. PLAVIX [Concomitant]
     Active Substance: CLOPIDOGREL BISULFATE

REACTIONS (2)
  - Pleuritic pain [Not Recovered/Not Resolved]
  - Drug ineffective [Unknown]

NARRATIVE: CASE EVENT DATE: 20220301
